FAERS Safety Report 4782211-9 (Version None)
Quarter: 2005Q3

REPORT INFORMATION
  Report Type: 
  Country: None (occurrence: None)
  Receive Date: 20050927
  Receipt Date: 20050825
  Transmission Date: 20060218
  Serious: No
  Sender: FDA-Public Use
  Company Number: USA030434068

PATIENT
  Age: 55 Year
  Sex: Male
  Weight: 69 kg

DRUGS (6)
  1. PROZAC [Suspect]
     Indication: ATTENTION DEFICIT/HYPERACTIVITY DISORDER
  2. PROZAC [Suspect]
     Indication: DEPRESSION
  3. STRATTERA [Suspect]
     Indication: ATTENTION DEFICIT/HYPERACTIVITY DISORDER
     Dosage: 40 MG/IN THE MORNING
     Dates: start: 20030410, end: 20030410
  4. STRATTERA [Suspect]
     Indication: DEPRESSION
     Dosage: 40 MG/IN THE MORNING
     Dates: start: 20030410, end: 20030410
  5. STRATTERA [Suspect]
     Indication: ATTENTION DEFICIT/HYPERACTIVITY DISORDER
     Dosage: 40 MG DAY
     Dates: start: 20040201
  6. GEODON [Concomitant]

REACTIONS (6)
  - ASTHENIA [None]
  - HALLUCINATION [None]
  - HEADACHE [None]
  - HOT FLUSH [None]
  - LETHARGY [None]
  - PARAESTHESIA [None]
